FAERS Safety Report 13042001 (Version 1)
Quarter: 2016Q4

REPORT INFORMATION
  Report Type: Spontaneous
  Country: US (occurrence: US)
  Receive Date: 20161219
  Receipt Date: 20161219
  Transmission Date: 20170207
  Serious: Yes (Other)
  Sender: FDA-Public Use
  Company Number: US-ROCHE-1255766

PATIENT
  Age: 16 Year
  Sex: Female

DRUGS (2)
  1. ZELBORAF [Suspect]
     Active Substance: VEMURAFENIB
     Indication: METASTATIC MALIGNANT MELANOMA
     Route: 065
     Dates: start: 20110204
  2. ZELBORAF [Suspect]
     Active Substance: VEMURAFENIB
     Route: 065
     Dates: start: 20110311

REACTIONS (1)
  - Neutropenia [Recovered/Resolved]

NARRATIVE: CASE EVENT DATE: 20110303
